FAERS Safety Report 11248159 (Version 1)
Quarter: 2015Q3

REPORT INFORMATION
  Report Type: Spontaneous
  Country: US (occurrence: None)
  Receive Date: 20150707
  Receipt Date: 20150707
  Transmission Date: 20151125
  Serious: Yes (Hospitalization)
  Sender: FDA-Public Use
  Company Number: None

PATIENT
  Age: 79 Year
  Sex: Male
  Weight: 52.1 kg

DRUGS (1)
  1. WARFARIN [Suspect]
     Active Substance: WARFARIN
     Indication: ATRIAL FIBRILLATION
     Dosage: 2 MG OTHER PO
     Route: 048
     Dates: start: 20150609

REACTIONS (2)
  - Gastric haemorrhage [None]
  - International normalised ratio abnormal [None]

NARRATIVE: CASE EVENT DATE: 20150629
